FAERS Safety Report 18420536 (Version 2)
Quarter: 2020Q4

REPORT INFORMATION
  Report Type: Spontaneous
  Country: RS (occurrence: RS)
  Receive Date: 20201023
  Receipt Date: 20201027
  Transmission Date: 20210114
  Serious: Yes (Other)
  Sender: FDA-Public Use
  Company Number: NVSC2020RS279734

PATIENT
  Age: 74 Year
  Sex: Male

DRUGS (3)
  1. TRAVATAN [Suspect]
     Active Substance: TRAVOPROST
     Indication: GLAUCOMA
     Dosage: UNK
     Route: 047
     Dates: start: 201903
  2. GLAUMOL [Concomitant]
     Indication: GLAUCOMA
     Dosage: UNK, BID
     Route: 047
     Dates: start: 201805
  3. TRAVATAN [Suspect]
     Active Substance: TRAVOPROST
     Dosage: UNK, QD  (IN THE EVENING)
     Route: 047

REACTIONS (5)
  - Visual field defect [Unknown]
  - Open angle glaucoma [Unknown]
  - Visual impairment [Unknown]
  - Disease progression [Unknown]
  - Intraocular pressure increased [Unknown]

NARRATIVE: CASE EVENT DATE: 202001
